FAERS Safety Report 6928871-5 (Version None)
Quarter: 2010Q3

REPORT INFORMATION
  Report Type: 
  Country: None (occurrence: None)
  Receive Date: 20100817
  Receipt Date: 20100805
  Transmission Date: 20110219
  Serious: Yes (Other)
  Sender: FDA-Public Use
  Company Number: PHHY2010CA51062

PATIENT
  Sex: Female

DRUGS (6)
  1. AFINITOR [Suspect]
     Indication: METASTATIC NEOPLASM
     Dosage: 10 MG DAILY
     Route: 048
     Dates: start: 20100618, end: 20100630
  2. LANREOTIDE [Concomitant]
     Dosage: 40 MG,
  3. DECADRON [Concomitant]
     Dosage: 2 MG, BID
     Route: 048
  4. LOMOTIL [Concomitant]
     Dosage: 2 MG, PRN
  5. STEMETIL [Concomitant]
     Dosage: 10 MG, PRN
     Route: 048
  6. ACYCLOVIR [Concomitant]
     Dosage: 200 MG, UNK
     Route: 048

REACTIONS (9)
  - CONDITION AGGRAVATED [None]
  - CONTUSION [None]
  - DIARRHOEA [None]
  - DYSGEUSIA [None]
  - FATIGUE [None]
  - HYPOPHAGIA [None]
  - OEDEMA PERIPHERAL [None]
  - PETECHIAE [None]
  - SWELLING [None]
